FAERS Safety Report 7021151-1 (Version None)
Quarter: 2010Q3

REPORT INFORMATION
  Report Type: 
  Country: None (occurrence: None)
  Receive Date: 20100929
  Receipt Date: 20100924
  Transmission Date: 20110219
  Serious: Yes (Other)
  Sender: FDA-Public Use
  Company Number: US-TYCO HEALTHCARE/MALLINCKRODT-T201000746

PATIENT
  Age: 6 Month
  Sex: Male

DRUGS (9)
  1. OPTIRAY 350 [Suspect]
     Indication: CATHETERISATION CARDIAC
     Route: 042
  2. CEFAZOLIN [Concomitant]
     Indication: CATHETERISATION CARDIAC
     Dosage: UNK
  3. PROPOFOL [Concomitant]
     Indication: CATHETERISATION CARDIAC
     Dosage: UNK
  4. PANCURONIUM [Concomitant]
     Indication: CATHETERISATION CARDIAC
     Dosage: UNK
  5. HEPARIN [Concomitant]
     Indication: CATHETERISATION CARDIAC
     Dosage: UNK
  6. FUROSEMIDE [Concomitant]
     Indication: CATHETERISATION CARDIAC
     Dosage: UNK
  7. ATROPINE [Concomitant]
     Indication: CATHETERISATION CARDIAC
     Dosage: UNK
  8. NEOSTIGMINE [Concomitant]
     Indication: CATHETERISATION CARDIAC
     Dosage: UNK
  9. ISOFLURANE [Concomitant]
     Indication: CATHETERISATION CARDIAC
     Dosage: UNK

REACTIONS (1)
  - DERMATITIS EXFOLIATIVE [None]
